FAERS Safety Report 25259334 (Version 1)
Quarter: 2025Q2

REPORT INFORMATION
  Report Type: Report from Study
  Country: US (occurrence: US)
  Receive Date: 20250501
  Receipt Date: 20250501
  Transmission Date: 20250717
  Serious: Yes (Hospitalization)
  Sender: TAKEDA
  Company Number: US-TAKEDA-2025TUS040591

PATIENT
  Sex: Male

DRUGS (1)
  1. MARIBAVIR [Suspect]
     Active Substance: MARIBAVIR
     Indication: Heart transplant
     Dosage: 400 MILLIGRAM, BID
     Dates: start: 20250409

REACTIONS (5)
  - Neutrophil count decreased [Unknown]
  - Lymphocyte count decreased [Unknown]
  - Nausea [Unknown]
  - Diarrhoea [Unknown]
  - Taste disorder [Unknown]
